FAERS Safety Report 18402420 (Version 4)
Quarter: 2020Q4

REPORT INFORMATION
  Report Type: Spontaneous
  Country: JP (occurrence: JP)
  Receive Date: 20201020
  Receipt Date: 20201125
  Transmission Date: 20210114
  Serious: Yes (Other)
  Sender: FDA-Public Use
  Company Number: JP-009507513-2010JPN001187J

PATIENT
  Age: 69 Year
  Sex: Male

DRUGS (1)
  1. GLACTIV [Suspect]
     Active Substance: SITAGLIPTIN
     Indication: TYPE 2 DIABETES MELLITUS
     Dosage: UNK
     Route: 048
     Dates: start: 20100618

REACTIONS (1)
  - Seronegative arthritis [Recovered/Resolved]

NARRATIVE: CASE EVENT DATE: 20161104
